FAERS Safety Report 14699318 (Version 1)
Quarter: 2018Q1

REPORT INFORMATION
  Report Type: Spontaneous
  Country: US (occurrence: US)
  Receive Date: 20180330
  Receipt Date: 20180330
  Transmission Date: 20180509
  Serious: No
  Sender: FDA-Public Use
  Company Number: US-TEVA-2018-US-867642

PATIENT

DRUGS (1)
  1. BUPROPION HYDROCHLORIDE. [Suspect]
     Active Substance: BUPROPION HYDROCHLORIDE
     Dates: start: 201802

REACTIONS (9)
  - Fatigue [Unknown]
  - Negative thoughts [Unknown]
  - Palpitations [Unknown]
  - Depressed mood [Unknown]
  - Skin sensitisation [Unknown]
  - Tremor [Unknown]
  - Product commingling [Unknown]
  - Anxiety [Unknown]
  - Insomnia [Unknown]

NARRATIVE: CASE EVENT DATE: 201802
